FAERS Safety Report 15762298 (Version 1)
Quarter: 2018Q4

REPORT INFORMATION
  Report Type: Spontaneous
  Country: AU (occurrence: AU)
  Receive Date: 20181226
  Receipt Date: 20181226
  Transmission Date: 20190205
  Serious: Yes (Hospitalization, Other)
  Sender: FDA-Public Use
  Company Number: AU-PFIZER INC-2018518956

PATIENT

DRUGS (2)
  1. EPANUTIN [Suspect]
     Active Substance: PHENYTOIN SODIUM
  2. DILANTIN [Suspect]
     Active Substance: PHENYTOIN

REACTIONS (2)
  - Seizure [Not Recovered/Not Resolved]
  - Blood glucose increased [Unknown]

NARRATIVE: CASE EVENT DATE: 201812
